FAERS Safety Report 20858867 (Version 1)
Quarter: 2022Q2

REPORT INFORMATION
  Report Type: Spontaneous
  Country: US (occurrence: US)
  Receive Date: 20220522
  Receipt Date: 20220522
  Transmission Date: 20220721
  Serious: Yes (Other)
  Sender: FDA-Public Use
  Company Number: US-AMGEN-USASP2022085396

PATIENT
  Sex: Male

DRUGS (3)
  1. ENBREL [Suspect]
     Active Substance: ETANERCEPT
     Indication: Rheumatoid arthritis
     Dosage: 50 MILLIGRAM, QWK
     Route: 058
     Dates: start: 20220303
  2. METHOTREXATE [Concomitant]
     Active Substance: METHOTREXATE
     Dosage: UNK
     Route: 065
  3. OLMESARTAN [Concomitant]
     Active Substance: OLMESARTAN
     Dosage: 40-5-12
     Route: 065

REACTIONS (1)
  - Upper limb fracture [Unknown]

NARRATIVE: CASE EVENT DATE: 20220101
